FAERS Safety Report 11679565 (Version 5)
Quarter: 2015Q4

REPORT INFORMATION
  Report Type: Spontaneous
  Country: US (occurrence: US)
  Receive Date: 20151027
  Receipt Date: 20151120
  Transmission Date: 20160304
  Serious: No
  Sender: FDA-Public Use
  Company Number: US-ELI_LILLY_AND_COMPANY-US201010006319

PATIENT
  Age: 77 Year
  Sex: Female

DRUGS (6)
  1. FORTEO [Suspect]
     Active Substance: TERIPARATIDE
     Dosage: 20 UG, QD
  2. FORTEO [Suspect]
     Active Substance: TERIPARATIDE
     Dosage: 20 UG, DAILY (1/D)
     Dates: start: 20101012
  3. FORTEO [Suspect]
     Active Substance: TERIPARATIDE
     Dosage: 20 UG, QD
  4. FORTEO [Suspect]
     Active Substance: TERIPARATIDE
     Dosage: 20 UG, DAILY (1/D)
  5. FORTEO [Suspect]
     Active Substance: TERIPARATIDE
     Dosage: 20 UG, QD
  6. FORTEO [Suspect]
     Active Substance: TERIPARATIDE
     Indication: OSTEOPOROSIS
     Dosage: 20 UG, DAILY (1/D)
     Dates: start: 20100908, end: 201009

REACTIONS (24)
  - Chills [Not Recovered/Not Resolved]
  - Nerve injury [Unknown]
  - Pain in extremity [Unknown]
  - Rhinorrhoea [Not Recovered/Not Resolved]
  - Fear [Unknown]
  - Urinary tract infection [Unknown]
  - Vaginal discharge [Unknown]
  - Cystitis [Unknown]
  - Mass [Unknown]
  - Drug dose omission [Recovered/Resolved]
  - Injection site pain [Unknown]
  - Arthritis [Unknown]
  - Blood calcium increased [Unknown]
  - Back pain [Unknown]
  - Influenza like illness [Not Recovered/Not Resolved]
  - Gastrooesophageal reflux disease [Unknown]
  - Muscle spasms [Not Recovered/Not Resolved]
  - Thyroid hormones increased [Unknown]
  - Injection site rash [Unknown]
  - Nasopharyngitis [Unknown]
  - Headache [Unknown]
  - Renal function test abnormal [Unknown]
  - Pancreatic enzymes increased [Unknown]
  - Rectal haemorrhage [Unknown]

NARRATIVE: CASE EVENT DATE: 201009
